FAERS Safety Report 21631495 (Version 1)
Quarter: 2022Q4

REPORT INFORMATION
  Report Type: Spontaneous
  Country: BR (occurrence: BR)
  Receive Date: 20221123
  Receipt Date: 20221123
  Transmission Date: 20230113
  Serious: Yes (Other)
  Sender: FDA-Public Use
  Company Number: BR-TAKEDA-2022TUS088501

PATIENT
  Sex: Female
  Weight: 63 kg

DRUGS (4)
  1. VONOPRAZAN FUMARATE [Suspect]
     Active Substance: VONOPRAZAN FUMARATE
     Indication: Gastrooesophageal reflux disease
     Dosage: 10 MILLIGRAM, QD
     Route: 048
  2. DEXILANT [Suspect]
     Active Substance: DEXLANSOPRAZOLE
     Indication: Product used for unknown indication
     Dosage: 60 MILLIGRAM
     Route: 065
  3. DEXILANT [Suspect]
     Active Substance: DEXLANSOPRAZOLE
     Dosage: 30 MILLIGRAM
  4. SYNTHROID [Concomitant]
     Active Substance: LEVOTHYROXINE SODIUM
     Indication: Thyroid disorder
     Dosage: UNK UNK, QD
     Route: 065

REACTIONS (17)
  - COVID-19 [Unknown]
  - Gastritis erosive [Unknown]
  - Off label use [Unknown]
  - Gait disturbance [Unknown]
  - Pain in extremity [Unknown]
  - Dysgeusia [Unknown]
  - Therapeutic product effect decreased [Unknown]
  - Food intolerance [Unknown]
  - Liver disorder [Unknown]
  - Malaise [Unknown]
  - Sluggishness [Unknown]
  - Hypersomnia [Unknown]
  - Presyncope [Unknown]
  - Arthralgia [Unknown]
  - Cough [Unknown]
  - Bronchitis [Unknown]
  - Abdominal discomfort [Unknown]
